FAERS Safety Report 4351180-8 (Version None)
Quarter: 2004Q2

REPORT INFORMATION
  Report Type: 
  Country: None (occurrence: None)
  Receive Date: 20040428
  Receipt Date: 20031216
  Transmission Date: 20050107
  Serious: Yes (Hospitalization)
  Sender: FDA-Public Use
  Company Number: US-JNJFOC-20031203767

PATIENT
  Age: 30 Year
  Sex: Male
  Weight: 92.0802 kg

DRUGS (5)
  1. ULTRAM [Suspect]
     Indication: BACK PAIN
     Dosage: 1-2 TABS EVERY 4 HOURS
     Dates: start: 20020615, end: 20031001
  2. PREVACID [Concomitant]
  3. NORFLEX [Concomitant]
  4. PAXIL [Concomitant]
  5. PREVENTIL (SALBUTAMOL) [Concomitant]

REACTIONS (1)
  - CONVULSION [None]
